FAERS Safety Report 8760949 (Version 1)
Quarter: 2012Q4

REPORT INFORMATION
  Report Type: 
  Country: US (occurrence: US)
  Receive Date: 20120830
  Receipt Date: 20120830
  Transmission Date: 20130627
  Serious: Yes (Hospitalization)
  Sender: FDA-Public Use
  Company Number: PHEH2012US016574

PATIENT
  Age: 51 Year
  Sex: Female
  Weight: 83.9 kg

DRUGS (22)
  1. SANDIMMUNE NEORAL [Suspect]
     Indication: RENAL TRANSPLANT
     Dosage: 75 mg, Q12H
     Route: 048
  2. ACETAMINOPHEN [Concomitant]
     Indication: PAIN
     Dosage: 4000 mg, in 24 hr
  3. ADVAIR DISKUS [Concomitant]
     Dosage: 1 DF, BID
  4. ALBUTEROL [Concomitant]
     Dosage: 2 DF, Q6H
  5. ALLOPURINOL [Concomitant]
     Dosage: 3 DF, QD
  6. ASPIRIN ^BAYER^ [Concomitant]
     Dosage: 1 DF, QD
  7. VITAMIN D3 [Concomitant]
     Dosage: 1 DF, QW
     Route: 048
  8. KLONOPIN [Concomitant]
     Dosage: 1 DF, QID
     Route: 048
  9. DOCOSAHEXANOIC ACID [Concomitant]
     Dosage: 1 DF, BID
     Route: 048
  10. APRESOLINE [Concomitant]
     Dosage: 1 DF, TID
     Route: 048
  11. LORCET-HD [Concomitant]
     Dosage: 1 DF, Q4H
     Route: 048
  12. DILAUDID [Concomitant]
     Dosage: 1 DF, Q4H
  13. INSULIN [Concomitant]
     Dosage: 1 DF, 5QD3SDO
  14. HUMULIN N [Concomitant]
     Dosage: 69 U, UNK
  15. LOPRESSOR [Concomitant]
     Dosage: 2 DF, BID
     Route: 048
  16. CELLCEPT [Concomitant]
     Dosage: 4 DF, Q12H
  17. NITROSTAT [Concomitant]
     Indication: CHEST PAIN
  18. PRILOSEC [Concomitant]
     Dosage: 1 DF, BID
     Route: 048
  19. ROXICODONE [Concomitant]
     Indication: CHEST PAIN
     Dosage: 2 DF, Q4H
  20. K-DUR [Concomitant]
     Dosage: 1 DF, QD
     Route: 048
  21. DELTASONE [Concomitant]
     Dosage: 1 DF, QD
     Route: 048
  22. RITUXAN [Concomitant]
     Dosage: 1 DF, once every 6 months

REACTIONS (7)
  - Chest pain [Recovering/Resolving]
  - Renal failure acute [Recovering/Resolving]
  - Diarrhoea [Recovering/Resolving]
  - Nausea [Recovering/Resolving]
  - Vomiting [Recovering/Resolving]
  - Hernia [Recovering/Resolving]
  - Blood glucose increased [Recovering/Resolving]
